FAERS Safety Report 8427047-2 (Version None)
Quarter: 2012Q2

REPORT INFORMATION
  Report Type: 
  Country: None (occurrence: None)
  Receive Date: 20120611
  Receipt Date: 20120607
  Transmission Date: 20120825
  Serious: Yes (Death)
  Sender: FDA-Public Use
  Company Number: CA-ROCHE-1076180

PATIENT
  Sex: Male
  Weight: 59.928 kg

DRUGS (6)
  1. LIPITOR [Concomitant]
  2. WHEY PROTEIN [Concomitant]
  3. FLOMAX [Concomitant]
  4. ENZYMES [Concomitant]
  5. AVASTIN [Suspect]
     Indication: HAEMANGIOPERICYTOMA
     Route: 042
     Dates: start: 20111102, end: 20120308
  6. VITAMINS NOS [Concomitant]

REACTIONS (1)
  - DEATH [None]
